FAERS Safety Report 9924751 (Version 1)
Quarter: 2014Q1

REPORT INFORMATION
  Report Type: Spontaneous
  Country: IT (occurrence: IT)
  Receive Date: 20140226
  Receipt Date: 20140226
  Transmission Date: 20141002
  Serious: Yes (Hospitalization)
  Sender: FDA-Public Use
  Company Number: IT-BAYER-2014-026353

PATIENT
  Age: 75 Year
  Sex: Male

DRUGS (3)
  1. CARDIOASPIRIN [Suspect]
     Indication: ANGIOPLASTY
     Dosage: 100 MG, ONCE
     Route: 048
     Dates: start: 20140204, end: 20140204
  2. FLECTADOL [Suspect]
     Indication: ANGIOPLASTY
     Dosage: 500 MG, ONCE
     Route: 042
     Dates: start: 20140203, end: 20140203
  3. AMIODARONE [Concomitant]
     Indication: VENTRICULAR EXTRASYSTOLES
     Dosage: DAILY DOSE 600 MG
     Route: 042
     Dates: start: 20140203, end: 20140204

REACTIONS (2)
  - Blood creatine phosphokinase increased [Recovered/Resolved]
  - Blood creatine phosphokinase MB increased [Recovered/Resolved]
